FAERS Safety Report 9202692 (Version 1)
Quarter: 2013Q2

REPORT INFORMATION
  Report Type: Spontaneous
  Country: GB (occurrence: GB)
  Receive Date: 20130401
  Receipt Date: 20130401
  Transmission Date: 20140414
  Serious: Yes (Other)
  Sender: FDA-Public Use
  Company Number: PHHY2013GB029178

PATIENT
  Age: 5 Year
  Sex: Male

DRUGS (7)
  1. CICLOSPORIN [Suspect]
     Indication: NEPHROTIC SYNDROME
     Route: 048
  2. PREDNISOLONE [Concomitant]
     Indication: NEPHROTIC SYNDROME
     Dosage: 60 MG/M2, QD
     Route: 048
  3. PREDNISOLONE [Concomitant]
     Dosage: 40 MG/M2, ON ALTERNATE DAYS
  4. PREDNISOLONE [Concomitant]
     Dosage: 60 MG/M2, QD
     Route: 048
  5. METHYLPREDNISOLONE [Concomitant]
     Indication: NEPHROTIC SYNDROME
     Dosage: 3 MG/KG, QD
     Route: 042
  6. CYCLOPHOSPHAMIDE [Concomitant]
     Indication: NEPHROTIC SYNDROME
     Dosage: 3 MG/KG, QD
     Route: 048
  7. MYCOPHENOLATE MOFETIL [Concomitant]
     Indication: NEPHROTIC SYNDROME
     Dosage: 600 MG/M2, BID

REACTIONS (3)
  - Gingival hypertrophy [Unknown]
  - Hypertension [Unknown]
  - Hypertrichosis [Unknown]
